FAERS Safety Report 4845560-1 (Version None)
Quarter: 2005Q4

REPORT INFORMATION
  Report Type: 
  Country: None (occurrence: None)
  Receive Date: 20051201
  Receipt Date: 20051116
  Transmission Date: 20060501
  Serious: Yes (Hospitalization)
  Sender: FDA-Public Use
  Company Number: 2005BI017783

PATIENT
  Age: 61 Year
  Sex: Female

DRUGS (6)
  1. AVONEX [Suspect]
     Indication: MULTIPLE SCLEROSIS
     Dates: start: 19990211, end: 20050501
  2. THIAMINE HCL [Concomitant]
  3. ALTACE [Concomitant]
  4. ACTONEL [Concomitant]
  5. CELEBREX [Concomitant]
  6. WVI [Concomitant]

REACTIONS (1)
  - ARTHRITIS [None]
